FAERS Safety Report 10313637 (Version 1)
Quarter: 2014Q3

REPORT INFORMATION
  Report Type: Spontaneous
  Country: PK (occurrence: PK)
  Receive Date: 20140718
  Receipt Date: 20140718
  Transmission Date: 20150326
  Serious: Yes (Other)
  Sender: FDA-Public Use
  Company Number: PK-SA-2014SA093363

PATIENT
  Age: 32 Year
  Sex: Female

DRUGS (5)
  1. METOCLOPRAMIDE. [Concomitant]
     Active Substance: METOCLOPRAMIDE
     Indication: PREOPERATIVE CARE
     Dosage: DOSE: 1 MG/5 ML
     Route: 042
     Dates: start: 20140709
  2. FLAGYL [Concomitant]
     Active Substance: METRONIDAZOLE\METRONIDAZOLE HYDROCHLORIDE
     Indication: PREOPERATIVE CARE
     Route: 042
     Dates: start: 20140709
  3. ZANTAC [Concomitant]
     Active Substance: RANITIDINE HYDROCHLORIDE
     Indication: PREOPERATIVE CARE
     Dosage: DOSE: 1 MG/5 ML
     Route: 042
     Dates: start: 20140709
  4. RINGER LACTATE ^SALVIA^ [Concomitant]
     Indication: PREOPERATIVE CARE
     Route: 042
     Dates: start: 20140709
  5. CLAFORAN [Suspect]
     Active Substance: CEFOTAXIME SODIUM
     Indication: PREOPERATIVE CARE
     Route: 042
     Dates: start: 20140709, end: 20140709

REACTIONS (6)
  - Rash [Recovering/Resolving]
  - Pruritus [Recovering/Resolving]
  - Hypotension [Recovering/Resolving]
  - Exposure during pregnancy [Unknown]
  - Asphyxia [Recovering/Resolving]
  - Tachycardia [Recovering/Resolving]

NARRATIVE: CASE EVENT DATE: 20140709
